FAERS Safety Report 4386309-9 (Version None)
Quarter: 2004Q2

REPORT INFORMATION
  Report Type: 
  Country: None (occurrence: None)
  Receive Date: 20040625
  Receipt Date: 20040625
  Transmission Date: 20050107
  Serious: Yes (Hospitalization)
  Sender: FDA-Public Use
  Company Number: None

PATIENT
  Age: 56 Year
  Sex: Female

DRUGS (2)
  1. VANCOMYCIN [Suspect]
     Indication: ANTIBACTERIAL PROPHYLAXIS
     Dosage: IV
     Route: 042
     Dates: start: 20040422
  2. VANCOMYCIN [Suspect]
     Indication: PREOPERATIVE CARE
     Dosage: IV
     Route: 042
     Dates: start: 20040422

REACTIONS (2)
  - POSTOPERATIVE FEVER [None]
  - TOXIC EPIDERMAL NECROLYSIS [None]
